FAERS Safety Report 11809075 (Version 1)
Quarter: 2015Q4

REPORT INFORMATION
  Report Type: Spontaneous
  Country: CA (occurrence: CA)
  Receive Date: 20151207
  Receipt Date: 20151207
  Transmission Date: 20160305
  Serious: Yes (Other)
  Sender: FDA-Public Use
  Company Number: CA-TEVA-614150ACC

PATIENT
  Age: 72 Year
  Sex: Female
  Weight: 58.57 kg

DRUGS (1)
  1. GEMFIBROZIL. [Suspect]
     Active Substance: GEMFIBROZIL
     Indication: BLOOD CHOLESTEROL INCREASED
     Route: 048

REACTIONS (2)
  - Adenoid cystic carcinoma [Unknown]
  - Oral mucosal blistering [Unknown]
